FAERS Safety Report 6978481-9 (Version None)
Quarter: 2010Q3

REPORT INFORMATION
  Report Type: 
  Country: None (occurrence: None)
  Receive Date: 20100913
  Receipt Date: 20100823
  Transmission Date: 20110219
  Serious: Yes (Other)
  Sender: FDA-Public Use
  Company Number: JP-BAYER-200810519BYL

PATIENT
  Age: 38 Year
  Sex: Female

DRUGS (14)
  1. BETAFERON [Suspect]
     Indication: RELAPSING-REMITTING MULTIPLE SCLEROSIS
     Dosage: 8MIU, QOD
     Route: 058
     Dates: start: 20050518, end: 20070115
  2. BETAFERON [Suspect]
     Dosage: 4MIU, QOD
     Route: 058
     Dates: start: 20070116
  3. PARIET [Suspect]
     Indication: GASTRIC ULCER
     Route: 048
     Dates: start: 20060104
  4. RIVOTRIL [Suspect]
     Indication: RELAPSING-REMITTING MULTIPLE SCLEROSIS
     Dosage: 0.5-1.5 MG/DAY
     Route: 048
     Dates: start: 20050715
  5. LIORESAL [Suspect]
     Indication: RELAPSING-REMITTING MULTIPLE SCLEROSIS
     Dosage: 15-30 MG/DAY
     Route: 048
     Dates: start: 20060104
  6. DANTRIUM [Suspect]
     Indication: RELAPSING-REMITTING MULTIPLE SCLEROSIS
     Route: 048
     Dates: start: 20060530
  7. TIZANIDINE HCL [Suspect]
     Indication: RELAPSING-REMITTING MULTIPLE SCLEROSIS
     Route: 048
     Dates: start: 20060518
  8. DEPAS [Suspect]
     Indication: INSOMNIA
     Route: 048
     Dates: start: 20061114
  9. MYONAL [Concomitant]
     Indication: RELAPSING-REMITTING MULTIPLE SCLEROSIS
     Route: 048
     Dates: start: 20050518, end: 20060308
  10. ALFAROL [Concomitant]
     Indication: OSTEOPOROSIS
     Route: 048
     Dates: start: 20060104
  11. TIZANIDINE HCL [Concomitant]
     Route: 048
     Dates: start: 20060518
  12. HALCION [Concomitant]
     Indication: INSOMNIA
     Route: 048
     Dates: start: 20061017, end: 20061114
  13. LOPEMIN [Concomitant]
     Indication: DIARRHOEA
     Route: 048
     Dates: start: 20061017
  14. MYSLEE [Concomitant]
     Indication: INSOMNIA
     Route: 048
     Dates: start: 20050819

REACTIONS (10)
  - ALANINE AMINOTRANSFERASE INCREASED [None]
  - ANAEMIA [None]
  - ASPARTATE AMINOTRANSFERASE INCREASED [None]
  - BLOOD ALBUMIN DECREASED [None]
  - GAMMA-GLUTAMYLTRANSFERASE INCREASED [None]
  - HAEMOGLOBIN DECREASED [None]
  - PANCYTOPENIA [None]
  - PLATELET COUNT DECREASED [None]
  - PROTEIN TOTAL DECREASED [None]
  - PROTEIN URINE PRESENT [None]
